FAERS Safety Report 23210623 (Version 2)
Quarter: 2023Q4

REPORT INFORMATION
  Report Type: Spontaneous
  Country: US (occurrence: US)
  Receive Date: 20231121
  Receipt Date: 20231226
  Transmission Date: 20240109
  Serious: No
  Sender: FDA-Public Use
  Company Number: US-PFM-2023-06537

PATIENT
  Weight: 11.297 kg

DRUGS (1)
  1. HEMANGEOL [Suspect]
     Active Substance: PROPRANOLOL HYDROCHLORIDE
     Indication: Haemangioma
     Dosage: 3.4 ML, BID (2/DAY)
     Route: 048

REACTIONS (2)
  - Condition aggravated [Unknown]
  - Haemangioma [Unknown]
